FAERS Safety Report 7375195-0 (Version None)
Quarter: 2011Q1

REPORT INFORMATION
  Report Type: 
  Country: None (occurrence: None)
  Receive Date: 20110325
  Receipt Date: 20110317
  Transmission Date: 20110831
  Serious: No
  Sender: FDA-Public Use
  Company Number: US-ROCHE-766498

PATIENT
  Age: 2 Year
  Sex: Male
  Weight: 10.9 kg

DRUGS (1)
  1. TAMIFLU [Suspect]
     Route: 065
     Dates: start: 20110316

REACTIONS (2)
  - NO ADVERSE EVENT [None]
  - INCORRECT DOSE ADMINISTERED [None]
